FAERS Safety Report 16438605 (Version 2)
Quarter: 2022Q2

REPORT INFORMATION
  Report Type: Spontaneous
  Country: CA (occurrence: CA)
  Receive Date: 20190617
  Receipt Date: 20220418
  Transmission Date: 20220720
  Serious: Yes (Other)
  Sender: FDA-Public Use
  Company Number: CA-SA-2019SA153440

PATIENT
  Age: 42 Year
  Sex: Female

DRUGS (5)
  1. DOCETAXEL [Suspect]
     Active Substance: DOCETAXEL
     Indication: Breast cancer
     Dosage: 2000 MG
     Route: 042
  2. CYCLOPHOSPHAMIDE [Suspect]
     Active Substance: CYCLOPHOSPHAMIDE
     Indication: Breast cancer
     Dosage: UNK UNK, UNK
     Route: 042
  3. TRASTUZUMAB [Suspect]
     Active Substance: TRASTUZUMAB
     Indication: Breast cancer
     Dosage: 2000 MG, UNK
     Route: 065
  4. CYCLOPHOSPHAMIDE [Concomitant]
     Active Substance: CYCLOPHOSPHAMIDE
     Indication: Breast cancer
     Dosage: 2000 MG
  5. TRASTUZUMAB [Concomitant]
     Active Substance: TRASTUZUMAB
     Dosage: 2000MG

REACTIONS (2)
  - Respiratory failure [Recovering/Resolving]
  - Organising pneumonia [Recovering/Resolving]
